FAERS Safety Report 15402209 (Version 2)
Quarter: 2018Q4

REPORT INFORMATION
  Report Type: Spontaneous
  Country: FR (occurrence: FR)
  Receive Date: 20180919
  Receipt Date: 20181120
  Transmission Date: 20190204
  Serious: Yes (Other)
  Sender: FDA-Public Use
  Company Number: FR-BAYER-2018-171523

PATIENT
  Age: 70 Year
  Sex: Female

DRUGS (5)
  1. STIVARGA [Suspect]
     Active Substance: REGORAFENIB
     Indication: COLORECTAL CANCER METASTATIC
     Dosage: 80 MG, QD
     Dates: start: 2018, end: 2018
  2. STIVARGA [Suspect]
     Active Substance: REGORAFENIB
     Indication: ADENOCARCINOMA OF COLON
     Dosage: 120 MG, QD
     Dates: start: 2018, end: 20180617
  3. STIVARGA [Suspect]
     Active Substance: REGORAFENIB
     Indication: ADENOCARCINOMA OF COLON
     Dosage: 160 MG, QD
     Dates: start: 20180327, end: 2018
  4. TRIFLURIDINE. [Concomitant]
     Active Substance: TRIFLURIDINE
     Dosage: 60 MG, BID
  5. TIPIRACIL [Concomitant]
     Active Substance: TIPIRACIL

REACTIONS (5)
  - Dysphonia [None]
  - Metastases to lung [None]
  - Food intolerance [None]
  - Diarrhoea [Recovered/Resolved]
  - Asthenia [None]

NARRATIVE: CASE EVENT DATE: 2018
